FAERS Safety Report 11215649 (Version 2)
Quarter: 2015Q2

REPORT INFORMATION
  Report Type: Spontaneous
  Country: US (occurrence: US)
  Receive Date: 20150624
  Receipt Date: 20150624
  Transmission Date: 20150821
  Serious: Yes (Other)
  Sender: FDA-Public Use
  Company Number: US-PFIZER INC-2015206793

PATIENT
  Age: 70 Year
  Sex: Female
  Weight: 57.14 kg

DRUGS (55)
  1. AMLODIPINE [Concomitant]
     Active Substance: AMLODIPINE BESYLATE
     Dosage: 5 MG, UNK
  2. NOVOLOG MIX 70/30 [Concomitant]
     Active Substance: INSULIN ASPART
     Dosage: INSULIN ASPART 70/ PROTAMINE 30, 100 UNIT/ML SUBCUTANEOUS SOLUTION
     Route: 058
  3. TRIAMCINOLONE ACETONIDE. [Concomitant]
     Active Substance: TRIAMCINOLONE ACETONIDE
     Dosage: 0.5 %, TOPICAL CREAM
     Route: 061
  4. DOXYCYCLINE HYCLATE. [Concomitant]
     Active Substance: DOXYCYCLINE HYCLATE
     Dosage: 100 MG, UNK
  5. CIPROFLOXACIN. [Concomitant]
     Active Substance: CIPROFLOXACIN
     Dosage: 500 MG, UNK
  6. METHYLPREDNISOLONE. [Concomitant]
     Active Substance: METHYLPREDNISOLONE
     Dosage: 4 MG TABLETS IN A CLOSE PACK
  7. MORPHINE SULFATE EXTENDED-RELEASE [Concomitant]
     Active Substance: MORPHINE SULFATE
     Dosage: 300 MG, 3X/DAY (EVERY 8 HOURS)
     Route: 048
  8. NAPROXEN. [Concomitant]
     Active Substance: NAPROXEN
     Dosage: 500 MG, UNK
  9. PRAVASTATIN [Concomitant]
     Active Substance: PRAVASTATIN\PRAVASTATIN SODIUM
     Dosage: 40 MG, UNK
  10. SOTALOL. [Concomitant]
     Active Substance: SOTALOL
     Dosage: 80 MG, UNK
  11. TRIAMCINOLONE ACETONIDE. [Concomitant]
     Active Substance: TRIAMCINOLONE ACETONIDE
     Dosage: 0.1 %, TOPICAL CREAM
     Route: 061
  12. OXYCODONE - ACETAMINOPHEN [Concomitant]
     Active Substance: ACETAMINOPHEN\OXYCODONE HYDROCHLORIDE
     Dosage: OXYCODONE 5MG - ACETAMINOPHEN 325MG, UNK
  13. LYRICA [Suspect]
     Active Substance: PREGABALIN
     Dosage: 150 MG, 3X/DAY
     Route: 048
     Dates: start: 2012
  14. METFORMIN HYDROCHLORIDE. [Concomitant]
     Active Substance: METFORMIN HYDROCHLORIDE
     Dosage: 1000 MG, UNK
  15. DUREZOL [Concomitant]
     Active Substance: DIFLUPREDNATE
     Dosage: 0.05 %, UNK
  16. HALOBETASOL PROPIONATE. [Concomitant]
     Active Substance: HALOBETASOL PROPIONATE
     Dosage: 0.05 %, TOPICAL CREAM
     Route: 061
  17. LEVOFLOXACIN. [Concomitant]
     Active Substance: LEVOFLOXACIN
     Dosage: 500 MG, UNK
  18. MELOXICAM. [Concomitant]
     Active Substance: MELOXICAM
     Dosage: 7.5 MG, UNK
  19. PREDNISONE. [Concomitant]
     Active Substance: PREDNISONE
     Dosage: 10 MG, UNK
  20. NORTRIPTYLINE [Concomitant]
     Active Substance: NORTRIPTYLINE
     Dosage: 50 MG, UNK
  21. BETAMETHASONE [Concomitant]
     Active Substance: BETAMETHASONE
     Dosage: AUGMENTED 0.05% TOPICAL CREAM
     Route: 061
  22. CLINDAMYCIN [Concomitant]
     Active Substance: CLINDAMYCIN\CLINDAMYCIN PHOSPHATE
     Dosage: 300 MG, UNK
  23. METRONIDAZOLE. [Concomitant]
     Active Substance: METRONIDAZOLE
     Dosage: 500 MG, UNK
  24. WARFARIN [Concomitant]
     Active Substance: WARFARIN
     Dosage: 7.5 MG, UNK
  25. ZOFRAN ODT [Concomitant]
     Active Substance: ONDANSETRON HYDROCHLORIDE
     Dosage: 8 MG, 3X/DAY (EVERY 8 HOURS AS NEEDED)
     Route: 048
  26. METFORMIN [Concomitant]
     Active Substance: METFORMIN HYDROCHLORIDE
     Dosage: 500 MG, UNK
  27. AMITRIPTYLINE [Concomitant]
     Active Substance: AMITRIPTYLINE
     Dosage: 50 MG, UNK
  28. BACLOFEN. [Concomitant]
     Active Substance: BACLOFEN
     Dosage: 10 MG, UNK
  29. INSULIN [Concomitant]
     Active Substance: INSULIN NOS
     Dosage: INSULIN SYRINGE - NEEDLE U -100 1ML 30 GAUGE X 7/16
  30. LOSARTAN [Concomitant]
     Active Substance: LOSARTAN
     Dosage: 50 MG, UNK
  31. VENTOLIN HFA [Concomitant]
     Active Substance: ALBUTEROL SULFATE
     Dosage: 90MCG/ ACTUATION AEROSOL INHALER
  32. METOPROLOL TARTRATE. [Concomitant]
     Active Substance: METOPROLOL TARTRATE
     Dosage: 25 MG, UNK
  33. ALBUTEROL SULFATE. [Concomitant]
     Active Substance: ALBUTEROL SULFATE
     Dosage: 1.25 MG/3ML SOLUTION FOR NEBULIZATION
  34. LEVETIRACETAM. [Concomitant]
     Active Substance: LEVETIRACETAM
     Dosage: 500 MG, UNK
  35. OMEPRAZOLE. [Concomitant]
     Active Substance: OMEPRAZOLE
     Dosage: 40 MG, UNK
  36. POLYMYXIN B SULFATE - TRIMETHOPRIM [Concomitant]
     Dosage: POLYMYXIN B SULFATE 10,000 UNIT-TRIMETHOPRIM 1 MG/ML
  37. CIPROFLOXACIN. [Concomitant]
     Active Substance: CIPROFLOXACIN
     Dosage: 250 MG, UNK
  38. COMBIVENT [Concomitant]
     Active Substance: ALBUTEROL SULFATE\IPRATROPIUM BROMIDE
     Dosage: [IPRATROPIUM BROMIDE 18MCG]/[SALBUTAMOL SULFATE 103MCG]/ACTUATION AEROSOL INHALER
  39. KETOCONAZOLE. [Concomitant]
     Active Substance: KETOCONAZOLE
     Dosage: 200 MG, UNK
  40. LANTUS [Concomitant]
     Active Substance: INSULIN GLARGINE
     Dosage: 100 UNIT/ML SUBCUTANEOUS SOLUTION
     Route: 058
  41. LOVASTATIN. [Concomitant]
     Active Substance: LOVASTATIN
     Dosage: 40 MG, UNK
  42. MORPHINE SULFATE EXTENDED-RELEASE [Concomitant]
     Active Substance: MORPHINE SULFATE
     Dosage: 600 MG, 2X/DAY (EVERY 12 HOURS)
     Route: 048
  43. NEVANAC [Concomitant]
     Active Substance: NEPAFENAC
     Dosage: 0.1 % EYE DROPS SUSPENSION
  44. PNEUMOVAX 23 [Concomitant]
     Active Substance: PNEUMOCOCCAL VACCINE, POLYVALENT 23
     Dosage: 25 MCG/0.5 ML INJECTION SOLUTION
  45. WARFARIN [Concomitant]
     Active Substance: WARFARIN
     Dosage: 5 MG, UNK
  46. LYRICA [Suspect]
     Active Substance: PREGABALIN
     Dosage: 100 MG, 3X/DAY
     Route: 048
     Dates: start: 20111219
  47. AZITHROMYCIN [Concomitant]
     Active Substance: AZITHROMYCIN ANHYDROUS
     Dosage: 250 MG, UNK
  48. CLOTRIMAZOLE - BETAMETHASONE [Concomitant]
     Dosage: CLOTRIMAZOLE - BETAMETHASONE 1 - 0.05% TOPICAL CREAM
     Route: 061
  49. FLUTICASONE [Concomitant]
     Active Substance: FLUTICASONE\FLUTICASONE PROPIONATE
     Dosage: 50 MCG/ ACTUATION
  50. LISINOPRIL. [Concomitant]
     Active Substance: LISINOPRIL
     Dosage: 10 MG, UNK
  51. NITROFURANTOIN MONOHYDRATE/MACROCRYSTAL [Concomitant]
     Dosage: 100 MG, UNK
  52. OXYBUTYNIN CHLORIDE. [Concomitant]
     Active Substance: OXYBUTYNIN CHLORIDE
     Dosage: 5 MG, AS NEEDED
     Route: 048
  53. OXYCODONE [Concomitant]
     Active Substance: OXYCODONE
     Dosage: 15 MG, 4X/DAY (EVERY 6 HOURS AS NEED)
     Route: 048
  54. PRAVASTATIN [Concomitant]
     Active Substance: PRAVASTATIN\PRAVASTATIN SODIUM
     Dosage: 80 MG, UNK
  55. WARFARIN [Concomitant]
     Active Substance: WARFARIN
     Dosage: 2 MG, UNK

REACTIONS (5)
  - Gait disturbance [Unknown]
  - Memory impairment [Unknown]
  - Mental impairment [Unknown]
  - Disturbance in attention [Unknown]
  - Activities of daily living impaired [Unknown]
